FAERS Safety Report 6447609-1 (Version None)
Quarter: 2009Q4

REPORT INFORMATION
  Report Type: 
  Country: None (occurrence: None)
  Receive Date: 20091119
  Receipt Date: 20091109
  Transmission Date: 20100525
  Serious: Yes (Hospitalization, Other)
  Sender: FDA-Public Use
  Company Number: US-ABBOTT-09P-163-0607921-00

PATIENT
  Sex: Female
  Weight: 103.51 kg

DRUGS (8)
  1. NIASPAN [Suspect]
     Indication: BLOOD CHOLESTEROL INCREASED
     Route: 048
     Dates: start: 20070101, end: 20090801
  2. PNEUMOCOCCAL VACCINE [Suspect]
     Indication: PNEUMONIA
     Dates: start: 20091001, end: 20091001
  3. PNEUMOCOCCAL VACCINE [Suspect]
     Indication: PROPHYLAXIS
  4. ACTOS [Concomitant]
     Indication: DIABETES MELLITUS
  5. ATENOLOL [Concomitant]
     Indication: HYPERTENSION
  6. ASPIRIN [Concomitant]
     Indication: DRUG USE FOR UNKNOWN INDICATION
     Dosage: PRIOR TO TAKING NIASPAN
  7. BYETTA [Concomitant]
     Indication: DIABETES MELLITUS
  8. FLOURIDE VITAMIN [Concomitant]
     Indication: DRUG USE FOR UNKNOWN INDICATION
     Dates: start: 20090801

REACTIONS (11)
  - ANAEMIA [None]
  - BACK PAIN [None]
  - COUGH [None]
  - ERYTHEMA [None]
  - HEADACHE [None]
  - INJECTION SITE INFLAMMATION [None]
  - KIDNEY INFECTION [None]
  - MOUTH ULCERATION [None]
  - NASOPHARYNGITIS [None]
  - PAIN [None]
  - PYREXIA [None]
